FAERS Safety Report 9319055 (Version 3)
Quarter: 2014Q2

REPORT INFORMATION
  Report Type: Report from Study
  Country: DE (occurrence: DE)
  Receive Date: 20130530
  Receipt Date: 20140625
  Transmission Date: 20141212
  Serious: Yes (Other)
  Sender: FDA-Public Use
  Company Number: DE-ROCHE-1230571

PATIENT
  Sex: Male
  Weight: 84.08 kg

DRUGS (3)
  1. RANIBIZUMAB [Suspect]
     Indication: AGE-RELATED MACULAR DEGENERATION
     Route: 050
     Dates: start: 20121010
  2. RANIBIZUMAB [Suspect]
     Route: 050
     Dates: start: 20121107
  3. RANIBIZUMAB [Suspect]
     Route: 050
     Dates: start: 20121128

REACTIONS (3)
  - Visual acuity reduced [Unknown]
  - Inappropriate schedule of drug administration [Unknown]
  - Intraocular pressure increased [Not Recovered/Not Resolved]
